FAERS Safety Report 19019181 (Version 3)
Quarter: 2021Q1

REPORT INFORMATION
  Report Type: Spontaneous
  Country: US (occurrence: US)
  Receive Date: 20210316
  Receipt Date: 20210325
  Transmission Date: 20210420
  Serious: No
  Sender: FDA-Public Use
  Company Number: US-ELI_LILLY_AND_COMPANY-US202103006425

PATIENT
  Age: 55 Year
  Weight: 77.1 kg

DRUGS (6)
  1. EPINEPHRINE HCL [Concomitant]
     Active Substance: EPINEPHRINE
     Indication: INFUSION RELATED REACTION
     Dosage: 1 MG, OTHER (AS DIRECTED)
     Route: 030
     Dates: start: 20210125, end: 20210125
  2. BAMLANIVIMAB. [Suspect]
     Active Substance: BAMLANIVIMAB
     Indication: COVID-19
     Dosage: UNK, UNKNOWN
     Route: 065
     Dates: start: 20210125
  3. TIZANIDINE HCL [Concomitant]
     Active Substance: TIZANIDINE HYDROCHLORIDE
     Indication: PRODUCT USED FOR UNKNOWN INDICATION
     Dosage: 4 MG, TID (AS NEEDED)
     Route: 048
     Dates: start: 20210125, end: 20210224
  4. SODIUM CHLORIDE. [Concomitant]
     Active Substance: SODIUM CHLORIDE
     Indication: PRODUCT USED FOR UNKNOWN INDICATION
     Dosage: 50 ML, UNKNOWN
     Route: 042
     Dates: start: 20210125, end: 20210125
  5. SYMBICORT [Concomitant]
     Active Substance: BUDESONIDE\FORMOTEROL FUMARATE DIHYDRATE
     Indication: PRODUCT USED FOR UNKNOWN INDICATION
     Dosage: 160/4.5, BID
     Route: 055
     Dates: start: 20210125, end: 20210224
  6. ALBUTEROL SULFATE. [Concomitant]
     Active Substance: ALBUTEROL SULFATE
     Indication: PRODUCT USED FOR UNKNOWN INDICATION
     Dosage: 1.25 MG, PRN
     Route: 055
     Dates: start: 20210125, end: 20210225

REACTIONS (2)
  - Product dispensing error [Recovered/Resolved]
  - Wrong patient received product [Recovered/Resolved]

NARRATIVE: CASE EVENT DATE: 20210125
